FAERS Safety Report 17003973 (Version 1)
Quarter: 2019Q4

REPORT INFORMATION
  Report Type: Spontaneous
  Country: GB (occurrence: GB)
  Receive Date: 20191107
  Receipt Date: 20191107
  Transmission Date: 20200122
  Serious: Yes (Other)
  Sender: FDA-Public Use
  Company Number: GB-PERRIGO-19GB013379

PATIENT

DRUGS (3)
  1. NUROFEN                            /00109201/ [Concomitant]
     Active Substance: IBUPROFEN
     Indication: PRODUCT USED FOR UNKNOWN INDICATION
     Dosage: RARELY TAKEN
  2. NORZOL 40MG/ML PL00427/0068 [Suspect]
     Active Substance: METRONIDAZOLE BENZOATE
     Indication: TOOTH INFECTION
     Dosage: 1200 MG, QD
     Route: 048
     Dates: start: 20191002, end: 20191008
  3. FEMOSTON CONTI [Concomitant]
     Active Substance: DYDROGESTERONE\ESTRADIOL
     Indication: PRODUCT USED FOR UNKNOWN INDICATION

REACTIONS (10)
  - Paraesthesia [Not Recovered/Not Resolved]
  - Heart rate increased [Unknown]
  - Fatigue [Unknown]
  - Abdominal discomfort [Unknown]
  - Palpitations [Not Recovered/Not Resolved]
  - Diarrhoea [Not Recovered/Not Resolved]
  - Tinnitus [Not Recovered/Not Resolved]
  - Asthenia [Not Recovered/Not Resolved]
  - Headache [Not Recovered/Not Resolved]
  - Nausea [Not Recovered/Not Resolved]

NARRATIVE: CASE EVENT DATE: 20191002
